FAERS Safety Report 23748907 (Version 1)
Quarter: 2024Q2

REPORT INFORMATION
  Report Type: Report from Study
  Country: US (occurrence: None)
  Receive Date: 20240416
  Receipt Date: 20240416
  Transmission Date: 20240716
  Serious: Yes (Hospitalization, Other)
  Sender: FDA-Public Use
  Company Number: 2024A084894

PATIENT
  Age: 852 Month
  Sex: Male

DRUGS (2)
  1. BYETTA [Suspect]
     Active Substance: EXENATIDE
     Indication: Diabetes mellitus
  2. BYDUREON [Suspect]
     Active Substance: EXENATIDE

REACTIONS (9)
  - Regurgitation [Unknown]
  - Respiratory disorder [Unknown]
  - Dyspnoea [Unknown]
  - Myocardial injury [Unknown]
  - Atrial fibrillation [Not Recovered/Not Resolved]
  - Breath sounds abnormal [Unknown]
  - Myocardial infarction [Unknown]
  - Fatigue [Unknown]
  - Cerebrovascular accident [Unknown]

NARRATIVE: CASE EVENT DATE: 20230801
